FAERS Safety Report 8160011-X (Version None)
Quarter: 2012Q1

REPORT INFORMATION
  Report Type: 
  Country: None (occurrence: None)
  Receive Date: 20120223
  Receipt Date: 20120220
  Transmission Date: 20120608
  Serious: Yes (Other)
  Sender: FDA-Public Use
  Company Number: SE-GLAXOSMITHKLINE-B0747298A

PATIENT
  Sex: Female

DRUGS (1)
  1. LAMICTAL [Suspect]
     Indication: PRODUCT USED FOR UNKNOWN INDICATION
     Route: 065

REACTIONS (6)
  - DEAFNESS [None]
  - FACIAL PAIN [None]
  - DYSGEUSIA [None]
  - HYPOAESTHESIA [None]
  - AMNESIA [None]
  - DISTURBANCE IN ATTENTION [None]
